FAERS Safety Report 4420989-4 (Version None)
Quarter: 2004Q3

REPORT INFORMATION
  Report Type: 
  Country: None (occurrence: None)
  Receive Date: 20040809
  Receipt Date: 20040715
  Transmission Date: 20050211
  Serious: Yes (Hospitalization)
  Sender: FDA-Public Use
  Company Number: US-BRISTOL-MYERS SQUIBB COMPANY-12640751

PATIENT
  Age: 69 Year
  Sex: Female
  Weight: 110 kg

DRUGS (12)
  1. BLINDED: MURAGLITAZAR [Suspect]
     Indication: DIABETES MELLITUS NON-INSULIN-DEPENDENT
     Route: 048
     Dates: start: 20040413
  2. BLINDED: PLACEBO [Suspect]
     Indication: DIABETES MELLITUS NON-INSULIN-DEPENDENT
     Route: 048
     Dates: start: 20040413
  3. METFORMIN HCL [Suspect]
     Indication: DIABETES MELLITUS NON-INSULIN-DEPENDENT
     Dates: start: 20021201
  4. COUMADIN [Concomitant]
     Indication: PROPHYLAXIS
     Dosage: DOSE VARIES
     Dates: start: 20021201
  5. TOPROL-XL [Concomitant]
     Indication: ATRIAL FIBRILLATION
     Dosage: STARTED ON 50 MG AND INCREASED TO 100 MG 21-APR-2004 THEN 150MG ON 11-MAY-2004
     Dates: start: 20040115
  6. NEXIUM [Concomitant]
     Indication: GASTROOESOPHAGEAL REFLUX DISEASE
     Dates: start: 20040101
  7. SYNTHROID [Concomitant]
     Indication: HYPOTHYROIDISM
     Dates: start: 19770101
  8. LIPITOR [Concomitant]
     Indication: HYPERLIPIDAEMIA
     Dates: start: 20030701
  9. LISINOPRIL [Concomitant]
     Dates: start: 20021201
  10. COSOPT [Concomitant]
     Indication: GLAUCOMA
     Dates: start: 19980101
  11. XALATAN [Concomitant]
     Indication: GLAUCOMA
     Dates: start: 19980101
  12. HYDROCHLOROTHIAZIDE [Concomitant]
     Indication: HYPERTENSION
     Dates: start: 19970101

REACTIONS (1)
  - ATRIAL FIBRILLATION [None]
